FAERS Safety Report 24133625 (Version 1)
Quarter: 2024Q3

REPORT INFORMATION
  Report Type: Spontaneous
  Country: FR (occurrence: FR)
  Receive Date: 20240724
  Receipt Date: 20240724
  Transmission Date: 20241017
  Serious: Yes (Death)
  Sender: MYLAN
  Company Number: None

PATIENT
  Age: 1 Year
  Sex: Male
  Weight: 11.5 kg

DRUGS (6)
  1. PROPOFOL [Suspect]
     Active Substance: PROPOFOL
     Indication: Anaesthesia
     Dosage: 20 MILLIGRAM, 1 TOTAL
     Route: 042
     Dates: start: 20240415, end: 20240415
  2. DEXAMETHASONE [Suspect]
     Active Substance: DEXAMETHASONE
     Indication: Anaesthesia
     Dosage: 1.5 MILLIGRAM, 1 TOTAL
     Route: 042
     Dates: start: 20240415, end: 20240415
  3. ACETAMINOPHEN [Suspect]
     Active Substance: ACETAMINOPHEN
     Indication: Anaesthesia
     Dosage: 0.15 MILLIGRAM, 1 TOTAL
     Route: 065
     Dates: start: 20240415, end: 20240415
  4. OFLOXACIN [Suspect]
     Active Substance: OFLOXACIN
     Indication: Antibiotic therapy
     Dosage: 1 DOSAGE FORM, BID
     Route: 001
     Dates: start: 20240415, end: 20240418
  5. KETAMINE [Suspect]
     Active Substance: KETAMINE
     Indication: Anaesthesia
     Dosage: 2 MILLIGRAM, 1 TOTAL
     Route: 065
     Dates: start: 20240415, end: 20240415
  6. LIDOCAINE HYDROCHLORIDE [Suspect]
     Active Substance: LIDOCAINE HYDROCHLORIDE
     Indication: Anaesthesia
     Dosage: 10 MILLIGRAM, 1 TOTAL
     Route: 065
     Dates: start: 20240415, end: 20240415

REACTIONS (1)
  - Sudden infant death syndrome [Fatal]

NARRATIVE: CASE EVENT DATE: 20240418
